FAERS Safety Report 20201542 (Version 1)
Quarter: 2021Q4

REPORT INFORMATION
  Report Type: Report from Study
  Country: IT (occurrence: IT)
  Receive Date: 20211217
  Receipt Date: 20211217
  Transmission Date: 20220303
  Serious: Yes (Hospitalization, Other)
  Sender: FDA-Public Use
  Company Number: IT-NOVARTISPH-NVSC2021IT286798

PATIENT
  Age: 75 Year
  Sex: Female
  Weight: 47 kg

DRUGS (8)
  1. TAFINLAR [Suspect]
     Active Substance: DABRAFENIB MESYLATE
     Indication: Thyroid cancer
     Dosage: 150 MG, BID
     Route: 048
     Dates: start: 20210803
  2. TAFINLAR [Suspect]
     Active Substance: DABRAFENIB MESYLATE
     Dosage: 150 MG, BID
     Route: 048
  3. TAFINLAR [Suspect]
     Active Substance: DABRAFENIB MESYLATE
     Dosage: 150 MG, BID
     Route: 048
     Dates: start: 20210817
  4. TAFINLAR [Suspect]
     Active Substance: DABRAFENIB MESYLATE
     Dosage: 150 MG, BID
     Route: 048
     Dates: start: 20211028, end: 20211108
  5. TRAMETINIB [Suspect]
     Active Substance: TRAMETINIB
     Indication: Thyroid cancer
     Dosage: 2 MG, QD
     Route: 048
     Dates: start: 20210803
  6. TRAMETINIB [Suspect]
     Active Substance: TRAMETINIB
     Dosage: 2 MG, QD
     Route: 048
  7. TRAMETINIB [Suspect]
     Active Substance: TRAMETINIB
     Dosage: 2 MG, QD
     Route: 048
     Dates: start: 20210817
  8. TRAMETINIB [Suspect]
     Active Substance: TRAMETINIB
     Dosage: 2 MG, QD
     Route: 048
     Dates: start: 20211028, end: 20211108

REACTIONS (10)
  - Diarrhoea [Recovered/Resolved with Sequelae]
  - Hypokalaemia [Recovered/Resolved]
  - Pneumonia [Recovered/Resolved]
  - Muscle spasms [Recovered/Resolved]
  - Asthenia [Recovering/Resolving]
  - Blood creatine phosphokinase increased [Recovered/Resolved]
  - Nausea [Unknown]
  - Aspartate aminotransferase increased [Recovered/Resolved]
  - Vomiting [Unknown]
  - Pyrexia [Unknown]

NARRATIVE: CASE EVENT DATE: 20210805
